FAERS Safety Report 10083999 (Version 3)
Quarter: 2015Q1

REPORT INFORMATION
  Report Type: Spontaneous
  Country: US (occurrence: US)
  Receive Date: 20140417
  Receipt Date: 20150220
  Transmission Date: 20150720
  Serious: Yes (Hospitalization, Disabling, Other)
  Sender: FDA-Public Use
  Company Number: US-BAYER-2014-057330

PATIENT
  Age: 49 Year
  Sex: Female
  Weight: 68.27 kg

DRUGS (10)
  1. PERCOCET [Concomitant]
     Active Substance: ACETAMINOPHEN\OXYCODONE HYDROCHLORIDE
  2. LIPITOR [Concomitant]
     Active Substance: ATORVASTATIN CALCIUM
  3. TYLENOL [DIPHENHYDRAMINE HYDROCHLORIDE,PARACETAMOL] [Concomitant]
  4. YAZ [Suspect]
     Active Substance: DROSPIRENONE\ETHINYL ESTRADIOL
     Dosage: UNK
     Route: 048
     Dates: start: 2008, end: 2009
  5. FLAGYL [Concomitant]
     Active Substance: METRONIDAZOLE\METRONIDAZOLE HYDROCHLORIDE
  6. LEVAQUIN [Concomitant]
     Active Substance: LEVOFLOXACIN
  7. LOPRESSOR [Concomitant]
     Active Substance: METOPROLOL TARTRATE
  8. YASMIN [Suspect]
     Active Substance: DROSPIRENONE\ETHINYL ESTRADIOL
     Dosage: UNK
     Route: 048
     Dates: start: 2008, end: 2009
  9. PROTONIX [Concomitant]
     Active Substance: PANTOPRAZOLE SODIUM
  10. LEVOPHED [Concomitant]
     Active Substance: NOREPINEPHRINE BITARTRATE

REACTIONS (19)
  - Coronary artery disease [None]
  - Injury [None]
  - Gait disturbance [None]
  - Pulmonary embolism [None]
  - Emotional distress [None]
  - Activities of daily living impaired [None]
  - Chronic obstructive pulmonary disease [None]
  - Myocardial infarction [None]
  - Haematoma [None]
  - Deep vein thrombosis [None]
  - Coronary artery thrombosis [None]
  - Rheumatoid arthritis [None]
  - Asthma [None]
  - Pain [None]
  - Anxiety [None]
  - Cerebrovascular accident [None]
  - Thrombosis [None]
  - Depression [None]
  - Panic attack [None]

NARRATIVE: CASE EVENT DATE: 200808
